FAERS Safety Report 5142451-6 (Version None)
Quarter: 2006Q4

REPORT INFORMATION
  Report Type: 
  Country: None (occurrence: None)
  Receive Date: 20061030
  Receipt Date: 20061030
  Transmission Date: 20070319
  Serious: Yes (Death, Hospitalization)
  Sender: FDA-Public Use
  Company Number: None

PATIENT
  Age: 79 Year
  Sex: Male

DRUGS (14)
  1. CETUXIMAB (CETUXIMAB) [Suspect]
     Indication: NON-SMALL CELL LUNG CANCER
     Dosage: 250 MG/M2 I.V.
     Route: 042
     Dates: start: 20051130, end: 20060920
  2. CYANOCOBALAMIN [Concomitant]
  3. DORZOLAMIDE HCL [Concomitant]
  4. BRIMONIDINE TARTRATE [Concomitant]
  5. CLINDAMYCIN HCL (CLINDAMYCIN HYDROCHLORIDE) [Concomitant]
  6. CLINDAMYCIN PHOSPHATE [Concomitant]
  7. BISACODYL (BISACODYL) [Concomitant]
  8. ONDANSETRON [Concomitant]
  9. LOPERAMIDE HCL [Concomitant]
  10. PROCHLORPERAZINE MALEATE [Concomitant]
  11. LACTOBACILLUS (LACTOBACILLUS ACIDOPHILUS) [Concomitant]
  12. DIPHENHYDRAMINE HCL [Concomitant]
  13. ACETAMINOPHEN [Concomitant]
  14. HEPARIN [Concomitant]

REACTIONS (11)
  - ABDOMINAL DISTENSION [None]
  - BLOOD GLUCOSE INCREASED [None]
  - BLOOD MAGNESIUM INCREASED [None]
  - BLOOD UREA INCREASED [None]
  - CARDIAC ARREST [None]
  - CONSTIPATION [None]
  - DEHYDRATION [None]
  - INFUSION RELATED REACTION [None]
  - INTESTINAL OBSTRUCTION [None]
  - NAUSEA [None]
  - RASH [None]
